FAERS Safety Report 7596543 (Version 3)
Quarter: 2014Q2

REPORT INFORMATION
  Report Type: Spontaneous
  Country: US (occurrence: US)
  Receive Date: 20100920
  Receipt Date: 20140509
  Transmission Date: 20141212
  Serious: No
  Sender: FDA-Public Use
  Company Number: US-ASTRAZENECA-2010SE14267

PATIENT
  Age: 55 Year
  Sex: Female
  Weight: 96.2 kg

DRUGS (4)
  1. SEROQUEL [Suspect]
     Indication: DEPRESSION
     Route: 048
  2. SEROQUEL [Suspect]
     Indication: DEPRESSION
     Route: 048
  3. SEROQUEL [Suspect]
     Indication: DEPRESSION
     Route: 048
     Dates: start: 20140414
  4. SEROQUEL [Suspect]
     Indication: DEPRESSION
     Dosage: UNK BID
     Route: 048
     Dates: start: 20140414

REACTIONS (6)
  - Insomnia [Unknown]
  - Impaired work ability [Unknown]
  - Mental impairment [Unknown]
  - Feeling abnormal [Unknown]
  - Rapid eye movements sleep abnormal [Unknown]
  - Drug dose omission [Unknown]
